FAERS Safety Report 16576793 (Version 1)
Quarter: 2019Q3

REPORT INFORMATION
  Report Type: Spontaneous
  Country: US (occurrence: US)
  Receive Date: 20190716
  Receipt Date: 20190716
  Transmission Date: 20191004
  Serious: No
  Sender: FDA-Public Use
  Company Number: US-ALK-ABELLO A/S-2019AA002130

PATIENT

DRUGS (3)
  1. RAGWITEK [Suspect]
     Active Substance: AMBROSIA ARTEMISIIFOLIA POLLEN
     Indication: PRODUCT USED FOR UNKNOWN INDICATION
     Dosage: UNK
     Dates: start: 20190416, end: 20190422
  2. ODACTRA [Suspect]
     Active Substance: DERMATOPHAGOIDES FARINAE\DERMATOPHAGOIDES PTERONYSSINUS
     Indication: PRODUCT USED FOR UNKNOWN INDICATION
     Dosage: UNK
     Dates: start: 20190402, end: 20190429
  3. GRASTEK [Suspect]
     Active Substance: PHLEUM PRATENSE POLLEN
     Indication: PRODUCT USED FOR UNKNOWN INDICATION
     Dosage: UNK
     Dates: start: 20190409, end: 20190422

REACTIONS (5)
  - Mouth swelling [Recovered/Resolved]
  - Dysphagia [Recovered/Resolved]
  - Throat tightness [Recovered/Resolved]
  - Sensation of foreign body [Recovered/Resolved]
  - Pharyngeal erythema [Recovered/Resolved]

NARRATIVE: CASE EVENT DATE: 20190402
